FAERS Safety Report 5596272-0 (Version None)
Quarter: 2008Q1

REPORT INFORMATION
  Report Type: 
  Country: None (occurrence: None)
  Receive Date: 20080118
  Receipt Date: 20080108
  Transmission Date: 20080703
  Serious: Yes (Other)
  Sender: FDA-Public Use
  Company Number: FR-GILEAD-2008-0014939

PATIENT
  Age: 35 Year
  Sex: Female

DRUGS (7)
  1. VIREAD [Suspect]
     Route: 048
     Dates: end: 20061201
  2. LAMIVUDINE [Concomitant]
  3. NELFINAVIR [Concomitant]
     Dates: end: 20040301
  4. NEVIRAPINE [Concomitant]
     Dates: start: 20040301, end: 20040901
  5. ATAZANAVIR SULFATE [Concomitant]
     Dates: start: 20040901, end: 20061201
  6. RITONAVIR [Concomitant]
     Dates: start: 20040901
  7. FOSAMPRENAVIR [Concomitant]
     Dates: start: 20050901, end: 20061201

REACTIONS (1)
  - DRUG RESISTANCE [None]
